FAERS Safety Report 23970727 (Version 5)
Quarter: 2024Q2

REPORT INFORMATION
  Report Type: Spontaneous
  Country: US (occurrence: US)
  Receive Date: 20240613
  Receipt Date: 20240624
  Transmission Date: 20240716
  Serious: No
  Sender: FDA-Public Use
  Company Number: US-002147023-NVSC2024US123109

PATIENT
  Sex: Female

DRUGS (1)
  1. COSENTYX [Suspect]
     Active Substance: SECUKINUMAB
     Indication: Product used for unknown indication
     Dosage: 300 MG, QMO (150MGX2)
     Route: 065

REACTIONS (5)
  - Product leakage [Unknown]
  - Packaging design issue [Unknown]
  - Device audio issue [Unknown]
  - Needle issue [Unknown]
  - Incorrect dose administered [Unknown]
